FAERS Safety Report 17726233 (Version 3)
Quarter: 2020Q2

REPORT INFORMATION
  Report Type: Spontaneous
  Country: FR (occurrence: FR)
  Receive Date: 20200429
  Receipt Date: 20200525
  Transmission Date: 20200714
  Serious: Yes (Hospitalization, Other)
  Sender: FDA-Public Use
  Company Number: FR-AUROBINDO-AUR-APL-2020-020856

PATIENT
  Age: 69 Year
  Sex: Male

DRUGS (7)
  1. BEVACIZUMAB. [Suspect]
     Active Substance: BEVACIZUMAB
     Indication: NON-SMALL CELL LUNG CANCER
     Dosage: 1230 MILLIGRAM, 21 DAY
     Route: 042
     Dates: start: 20200213, end: 20200213
  2. CARBOPLATIN. [Suspect]
     Active Substance: CARBOPLATIN
     Indication: NON-SMALL CELL LUNG CANCER
     Dosage: 631 MILLIGRAM,21 DAY
     Route: 065
     Dates: start: 20200213, end: 20200213
  3. ATEZOLIZUMAB. [Suspect]
     Active Substance: ATEZOLIZUMAB
     Indication: NON-SMALL CELL LUNG CANCER
     Dosage: 1200 MILLIGRAM, 21 DAY
     Route: 041
     Dates: start: 20200213
  4. CARBOPLATIN. [Suspect]
     Active Substance: CARBOPLATIN
     Dosage: 556 MILLIGRAM,21 DAY
     Route: 065
     Dates: start: 20200305
  5. PEMETREXED. [Suspect]
     Active Substance: PEMETREXED
     Indication: NON-SMALL CELL LUNG CANCER
     Dosage: 1000 MILLIGRAM, 21 DAY
     Route: 065
     Dates: start: 20200213, end: 20200213
  6. BEVACIZUMAB. [Suspect]
     Active Substance: BEVACIZUMAB
     Dosage: 1185 MILLIGRAM, 21 DAY
     Route: 042
     Dates: start: 20200305
  7. PEMETREXED. [Suspect]
     Active Substance: PEMETREXED
     Dosage: 975 MILLIGRAM, 21 DAY
     Route: 065
     Dates: start: 20200305

REACTIONS (7)
  - Arthralgia [Recovered/Resolved]
  - Pyrexia [Recovered/Resolved]
  - Dyspnoea [Not Recovered/Not Resolved]
  - Stomatitis [Recovering/Resolving]
  - Dysphagia [Recovered/Resolved]
  - Encephalopathy [Recovered/Resolved]
  - Febrile neutropenia [Recovering/Resolving]

NARRATIVE: CASE EVENT DATE: 20200312
